FAERS Safety Report 19478207 (Version 1)
Quarter: 2021Q2

REPORT INFORMATION
  Report Type: Spontaneous
  Country: GB (occurrence: GB)
  Receive Date: 20210630
  Receipt Date: 20210630
  Transmission Date: 20210717
  Serious: Yes (Life-Threatening, Hospitalization, Disabling, Other)
  Sender: FDA-Public Use
  Company Number: GB-PFIZER INC-2021716079

PATIENT
  Age: 20 Year
  Sex: Female
  Weight: 62 kg

DRUGS (2)
  1. MISOPROSTOL. [Suspect]
     Active Substance: MISOPROSTOL
     Indication: ABORTION
     Dosage: 80 UG
     Route: 048
     Dates: start: 20201002, end: 20201002
  2. FOLIC ACID. [Concomitant]
     Active Substance: FOLIC ACID
     Dosage: UNK

REACTIONS (15)
  - Abdominal distension [Recovered/Resolved]
  - Hyperhidrosis [Recovered/Resolved]
  - Uterine perforation [Unknown]
  - Hypokinesia [Unknown]
  - Off label use [Unknown]
  - Shock [Recovered/Resolved]
  - Heart rate decreased [Recovered/Resolved]
  - Pyrexia [Recovered/Resolved]
  - Vaginal haemorrhage [Recovered/Resolved]
  - Vomiting [Recovered/Resolved]
  - Pain [Recovered/Resolved]
  - Bladder perforation [Unknown]
  - Blood pressure decreased [Recovered/Resolved]
  - Chills [Recovered/Resolved]
  - Sensory loss [Unknown]
